FAERS Safety Report 9476571 (Version 2)
Quarter: 2013Q3

REPORT INFORMATION
  Report Type: Spontaneous
  Country: IT (occurrence: IT)
  Receive Date: 20130826
  Receipt Date: 20130906
  Transmission Date: 20140515
  Serious: Yes (Hospitalization)
  Sender: FDA-Public Use
  Company Number: IT-JNJFOC-20130813497

PATIENT
  Age: 71 Year
  Sex: Male

DRUGS (6)
  1. PATROL [Suspect]
     Indication: BACK PAIN
     Route: 048
     Dates: start: 20130801, end: 20130808
  2. COUMADIN [Interacting]
     Indication: DEEP VEIN THROMBOSIS
     Route: 048
     Dates: start: 20120701, end: 20130809
  3. SERETIDE [Concomitant]
     Indication: PRODUCT USED FOR UNKNOWN INDICATION
     Route: 065
  4. SPIRIVA [Concomitant]
     Indication: PRODUCT USED FOR UNKNOWN INDICATION
     Route: 065
  5. PANTORC [Concomitant]
     Indication: PRODUCT USED FOR UNKNOWN INDICATION
     Route: 065
  6. ACETYLSALICYLIC ACID [Concomitant]
     Indication: PRODUCT USED FOR UNKNOWN INDICATION
     Route: 065

REACTIONS (4)
  - Hypocoagulable state [Recovering/Resolving]
  - Haemoptysis [Recovering/Resolving]
  - Drug interaction [Recovering/Resolving]
  - Medication error [Recovering/Resolving]
